FAERS Safety Report 9382301 (Version 1)
Quarter: 2013Q3

REPORT INFORMATION
  Report Type: Spontaneous
  Country: CN (occurrence: CN)
  Receive Date: 20130703
  Receipt Date: 20130703
  Transmission Date: 20140515
  Serious: Yes (Other)
  Sender: FDA-Public Use
  Company Number: CN-ROXANE LABORATORIES, INC.-2013-RO-01093RO

PATIENT
  Age: 27 Year
  Sex: Male

DRUGS (2)
  1. QUETIAPINE FUMARATE [Suspect]
     Indication: MAJOR DEPRESSION
     Dosage: 100 MG
  2. QUETIAPINE FUMARATE [Suspect]
     Dosage: 200 MG

REACTIONS (6)
  - Tubulointerstitial nephritis [Recovered/Resolved]
  - Dizziness [Unknown]
  - Sedation [Unknown]
  - Insomnia [Unknown]
  - Grandiosity [Unknown]
  - Abnormal behaviour [Unknown]
